FAERS Safety Report 20353190 (Version 2)
Quarter: 2022Q3

REPORT INFORMATION
  Report Type: Spontaneous
  Country: US (occurrence: US)
  Receive Date: 20220119
  Receipt Date: 20220727
  Transmission Date: 20221027
  Serious: No
  Sender: FDA-Public Use
  Company Number: US-RECRO GAINESVILLE LLC-REPH-2021-000017

PATIENT
  Age: 10 Year
  Sex: Male

DRUGS (2)
  1. VERAPAMIL HYDROCHLORIDE [Suspect]
     Active Substance: VERAPAMIL HYDROCHLORIDE
     Dosage: 180 MILLIGRAM
     Route: 048
  2. VERAPAMIL HYDROCHLORIDE [Suspect]
     Active Substance: VERAPAMIL HYDROCHLORIDE
     Indication: Supraventricular tachycardia
     Dosage: 180 MILLIGRAM
     Route: 048

REACTIONS (2)
  - Abdominal discomfort [Recovered/Resolved]
  - Incorrect product formulation administered [Recovered/Resolved]
